FAERS Safety Report 23494874 (Version 2)
Quarter: 2024Q1

REPORT INFORMATION
  Report Type: Spontaneous
  Country: US (occurrence: None)
  Receive Date: 20240207
  Receipt Date: 20240314
  Transmission Date: 20240410
  Serious: No
  Sender: FDA-Public Use
  Company Number: 2024A023716

PATIENT
  Sex: Female

DRUGS (2)
  1. SAPHNELO [Suspect]
     Active Substance: ANIFROLUMAB\ANIFROLUMAB-FNIA
     Route: 041
     Dates: start: 2023
  2. SAPHNELO [Suspect]
     Active Substance: ANIFROLUMAB\ANIFROLUMAB-FNIA
     Route: 041
     Dates: start: 20240105

REACTIONS (5)
  - Infusion related reaction [Unknown]
  - Bronchitis [Unknown]
  - Asthenia [Unknown]
  - Back pain [Unknown]
  - Loss of personal independence in daily activities [Unknown]
